FAERS Safety Report 4727238-8 (Version None)
Quarter: 2005Q3

REPORT INFORMATION
  Report Type: 
  Country: None (occurrence: None)
  Receive Date: 20050727
  Receipt Date: 20050727
  Transmission Date: 20060218
  Serious: No
  Sender: FDA-Public Use
  Company Number: None

PATIENT
  Age: 57 Year
  Sex: Male
  Weight: 85.5 kg

DRUGS (15)
  1. WARFARIN [Suspect]
     Dosage: VARIOUS, VARIOUS, ORAL
     Route: 048
  2. ATENOLOL [Concomitant]
  3. DIAZEPAM [Concomitant]
  4. FELODIPINE [Concomitant]
  5. LISINOPRIL [Concomitant]
  6. GABAPENTIN [Concomitant]
  7. NAPROXEN [Concomitant]
  8. OXYCODONE HCL [Concomitant]
  9. OXYCODONE AND ACETAMINOPHEN [Concomitant]
  10. SORBITOL [Concomitant]
  11. TERAZOSIN [Concomitant]
  12. SENNOSIDES [Concomitant]
  13. DOCUSATE SOD [Concomitant]
  14. PROCHLORPERAZINE [Concomitant]
  15. ACETAMINOPHEN [Concomitant]

REACTIONS (1)
  - INTERNATIONAL NORMALISED RATIO INCREASED [None]
